FAERS Safety Report 11047338 (Version 1)
Quarter: 2015Q2

REPORT INFORMATION
  Report Type: Spontaneous
  Country: NO (occurrence: None)
  Receive Date: 20150416
  Receipt Date: 20150416
  Transmission Date: 20150821
  Serious: Yes (Hospitalization)
  Sender: FDA-Public Use
  Company Number: FK201501726

PATIENT
  Age: 64 Year
  Sex: Male

DRUGS (8)
  1. OXALIPLATIN. [Suspect]
     Active Substance: OXALIPLATIN
     Indication: COLON CANCER
     Dosage: CYCLICAL
     Route: 041
  2. ORFIL LONG (VALPROATE SODIUM) [Concomitant]
  3. ALBYL-E (ALBYL-ENTEROSOLUBILE) [Concomitant]
  4. ZOPICLONE (ZOPICLONE) [Concomitant]
     Active Substance: ZOPICLONE
  5. PERSANTIN RETARD (DIPYRIDAMOLE) [Concomitant]
  6. FLUOROURACIL (FLUOROURACIL) [Concomitant]
     Active Substance: FLUOROURACIL
  7. LAMICTAL [Concomitant]
     Active Substance: LAMOTRIGINE
  8. LIPITOR [Concomitant]
     Active Substance: ATORVASTATIN CALCIUM

REACTIONS (4)
  - Thrombocytopenia [None]
  - Pyrexia [None]
  - Dyspnoea [None]
  - Cytokine release syndrome [None]

NARRATIVE: CASE EVENT DATE: 20150316
